FAERS Safety Report 9949312 (Version 2)
Quarter: 2014Q2

REPORT INFORMATION
  Report Type: Spontaneous
  Country: US (occurrence: None)
  Receive Date: 20140122
  Receipt Date: 20140421
  Transmission Date: 20141212
  Serious: Yes (Other)
  Sender: FDA-Public Use
  Company Number: AEGR000233

PATIENT
  Age: 69 Year
  Sex: Female
  Weight: 77.6 kg

DRUGS (3)
  1. JUXTAPID [Suspect]
     Indication: TYPE IIA HYPERLIPIDAEMIA
     Route: 048
     Dates: start: 20131114, end: 20131211
  2. METFORMIN HCL (METFORMIN HYDROCHLORIDE) [Concomitant]
  3. LEVOTHYROXINE SODIUM (LEVOTHYROXINE SODIUM) [Concomitant]

REACTIONS (6)
  - Gastrointestinal sounds abnormal [None]
  - Insomnia [None]
  - Inappropriate schedule of drug administration [None]
  - Diarrhoea [None]
  - Nausea [None]
  - Abdominal pain upper [None]
